FAERS Safety Report 8874590 (Version 1)
Quarter: 2012Q4

REPORT INFORMATION
  Report Type: 
  Country: FR (occurrence: FR)
  Receive Date: 20121031
  Receipt Date: 20121031
  Transmission Date: 20130627
  Serious: Yes (Other)
  Sender: FDA-Public Use
  Company Number: FR-JNJFOC-20121016100

PATIENT
  Age: 32 Year
  Sex: Female
  Weight: 57.6 kg

DRUGS (15)
  1. REMICADE [Suspect]
     Indication: CROHN^S DISEASE
     Route: 042
  2. REMICADE [Suspect]
     Indication: CROHN^S DISEASE
     Route: 042
     Dates: start: 20090417, end: 20100602
  3. REMICADE [Suspect]
     Indication: CROHN^S DISEASE
     Route: 042
     Dates: start: 20061215, end: 20090220
  4. REMICADE [Suspect]
     Indication: CROHN^S DISEASE
     Dosage: 5th injection
     Route: 042
     Dates: start: 20061020
  5. REMICADE [Suspect]
     Indication: CROHN^S DISEASE
     Dosage: 4th injection
     Route: 042
     Dates: start: 20060825
  6. REMICADE [Suspect]
     Indication: CROHN^S DISEASE
     Route: 042
     Dates: start: 20100716, end: 20120216
  7. FLAGYL [Concomitant]
     Route: 065
     Dates: start: 20120605
  8. SOLUPRED [Concomitant]
     Route: 065
     Dates: start: 201205
  9. SOLUPRED [Concomitant]
     Route: 065
     Dates: start: 20120801
  10. PENTASA [Concomitant]
     Route: 065
     Dates: start: 200505, end: 200512
  11. PENTASA [Concomitant]
     Route: 065
     Dates: start: 1999
  12. IMUREL [Concomitant]
     Route: 065
     Dates: start: 20060825, end: 200710
  13. IMUREL [Concomitant]
     Route: 065
     Dates: start: 2000, end: 200302
  14. HUMIRA [Concomitant]
     Route: 065
     Dates: start: 201203
  15. HUMIRA [Concomitant]
     Route: 065
     Dates: start: 201205, end: 20120727

REACTIONS (6)
  - Malignant melanoma [Recovered/Resolved]
  - Neoplasm [Unknown]
  - Crohn^s disease [Unknown]
  - Drug ineffective [Unknown]
  - Gastritis [Unknown]
  - Arthralgia [Unknown]
